FAERS Safety Report 5869832-7 (Version None)
Quarter: 2008Q3

REPORT INFORMATION
  Report Type: 
  Country: None (occurrence: None)
  Receive Date: 20080902
  Receipt Date: 20080821
  Transmission Date: 20090109
  Serious: Yes (Other)
  Sender: FDA-Public Use
  Company Number: CHPA2008US13961

PATIENT
  Age: 66 Year
  Sex: Female

DRUGS (2)
  1. BENEFIBER W/ WHEAT DEXTRIN (NCH) (WHEAT DEXTRIN) CAPLET [Suspect]
     Indication: CONSTIPATION
     Dosage: 2 DF, QID, ORAL
     Route: 048
     Dates: start: 20070101
  2. BENEFIBER W/ WHEAT DEXTRIN (NCH) (WHEAT DEXTRIN) CAPLET [Suspect]
     Indication: NUTRITIONAL SUPPORT
     Dosage: 2 DF, QID, ORAL
     Route: 048
     Dates: start: 20070101

REACTIONS (2)
  - DRUG INEFFECTIVE [None]
  - KNEE ARTHROPLASTY [None]
